FAERS Safety Report 14418845 (Version 1)
Quarter: 2018Q1

REPORT INFORMATION
  Report Type: Spontaneous
  Country: US (occurrence: US)
  Receive Date: 20180122
  Receipt Date: 20180122
  Transmission Date: 20180509
  Serious: No
  Sender: FDA-Public Use
  Company Number: US-TEVA-763003ACC

PATIENT
  Sex: Female

DRUGS (5)
  1. CLONAZEPAM. [Concomitant]
     Active Substance: CLONAZEPAM
  2. TRAZODONE HYDROCHLORIDE TABLETS [Suspect]
     Active Substance: TRAZODONE HYDROCHLORIDE
     Indication: SLEEP DISORDER
     Dates: start: 2014
  3. TRAZODONE HYDROCHLORIDE TABLETS [Suspect]
     Active Substance: TRAZODONE HYDROCHLORIDE
     Dosage: DOSAGE WAS INCREASED TO 75MG
     Dates: start: 2016
  4. TRAZODONE HYDROCHLORIDE TABLETS [Suspect]
     Active Substance: TRAZODONE HYDROCHLORIDE
     Dosage: INCREASED TO 100MG
     Dates: start: 201701
  5. PAROXETINE. [Concomitant]
     Active Substance: PAROXETINE

REACTIONS (8)
  - Asthenia [Unknown]
  - Drug ineffective [Unknown]
  - Depression [Unknown]
  - Weight decreased [Unknown]
  - Nervousness [Unknown]
  - Malabsorption [Unknown]
  - Anxiety [Unknown]
  - Dyspepsia [Unknown]

NARRATIVE: CASE EVENT DATE: 2016
